FAERS Safety Report 20872478 (Version 1)
Quarter: 2022Q2

REPORT INFORMATION
  Report Type: Spontaneous
  Country: AR (occurrence: AR)
  Receive Date: 20220525
  Receipt Date: 20220525
  Transmission Date: 20220720
  Serious: Yes (Other)
  Sender: FDA-Public Use
  Company Number: AR-PFIZER INC-202200717462

PATIENT
  Age: 56 Year
  Sex: Female

DRUGS (1)
  1. AROMASIN [Suspect]
     Active Substance: EXEMESTANE
     Indication: Breast cancer
     Dosage: 25 MG, DAILY
     Dates: start: 20220209

REACTIONS (2)
  - Pain [Not Recovered/Not Resolved]
  - Thermal burn [Not Recovered/Not Resolved]
